FAERS Safety Report 4871692-8 (Version None)
Quarter: 2006Q1

REPORT INFORMATION
  Report Type: 
  Country: None (occurrence: None)
  Receive Date: 20060104
  Receipt Date: 20051220
  Transmission Date: 20060701
  Serious: Yes (Other)
  Sender: FDA-Public Use
  Company Number: GBWYE253621DEC05

PATIENT
  Age: 62 Year
  Sex: Male

DRUGS (2)
  1. ENBREL [Suspect]
     Indication: DRUG USE FOR UNKNOWN INDICATION
     Route: 058
     Dates: start: 20040924, end: 20050801
  2. METHOTREXATE [Concomitant]
     Dosage: UNKNOWN

REACTIONS (2)
  - GASTROINTESTINAL CARCINOMA [None]
  - RECURRENT CANCER [None]
